FAERS Safety Report 5413818-3 (Version None)
Quarter: 2007Q3

REPORT INFORMATION
  Report Type: 
  Country: None (occurrence: None)
  Receive Date: 20070814
  Receipt Date: 20060914
  Transmission Date: 20080115
  Serious: No
  Sender: FDA-Public Use
  Company Number: US-BRISTOL-MYERS SQUIBB COMPANY-13509559

PATIENT
  Age: 39 Year
  Sex: Male
  Weight: 57 kg

DRUGS (4)
  1. REYATAZ [Suspect]
     Indication: HIV INFECTION
     Dates: start: 20060201, end: 20060913
  2. NORVIR [Concomitant]
  3. TRUVADA [Concomitant]
  4. BACTRIM [Concomitant]

REACTIONS (1)
  - NEPHROLITHIASIS [None]
